FAERS Safety Report 22139378 (Version 3)
Quarter: 2024Q3

REPORT INFORMATION
  Report Type: Spontaneous
  Country: BR (occurrence: BR)
  Receive Date: 20230327
  Receipt Date: 20240829
  Transmission Date: 20241017
  Serious: Yes (Other)
  Sender: CELLTRION
  Company Number: BR-CELLTRION INC.-2022BR013500

PATIENT

DRUGS (4)
  1. INFLIXIMAB [Suspect]
     Active Substance: INFLIXIMAB
     Indication: Psoriasis
     Dosage: 6 AMPOULES (100 MG EACH) EVERY 6 WEEKS
     Route: 042
     Dates: start: 20220819, end: 202311
  2. INFLIXIMAB [Suspect]
     Active Substance: INFLIXIMAB
     Indication: Psoriatic arthropathy
     Dosage: 6 AMPOULES (100 MG EACH) EVERY 6 WEEKS
     Route: 042
     Dates: start: 20230320
  3. INFLIXIMAB [Suspect]
     Active Substance: INFLIXIMAB
     Dosage: 6 AMPOULES (100 MG EACH) EVERY 45 DAYS
     Route: 042
     Dates: end: 202311
  4. LOSARTAN [Concomitant]
     Active Substance: LOSARTAN\LOSARTAN POTASSIUM
     Indication: Hypertension
     Dosage: 2 PILLS PER DAY
     Route: 048
     Dates: start: 2018

REACTIONS (7)
  - Uveitis [Unknown]
  - Skin depigmentation [Recovered/Resolved]
  - Arthralgia [Recovered/Resolved]
  - Skin exfoliation [Recovered/Resolved]
  - Intentional dose omission [Unknown]
  - Intentional product use issue [Unknown]
  - Therapy interrupted [Unknown]
